FAERS Safety Report 7534478-1 (Version None)
Quarter: 2011Q2

REPORT INFORMATION
  Report Type: 
  Country: None (occurrence: None)
  Receive Date: 20110609
  Receipt Date: 20110601
  Transmission Date: 20111010
  Serious: Yes (Hospitalization)
  Sender: FDA-Public Use
  Company Number: PHHO2011US04611

PATIENT
  Sex: Male
  Weight: 63.265 kg

DRUGS (7)
  1. OXYCONTIN [Concomitant]
  2. CALCIUM CARBONATE [Concomitant]
  3. ZOMETA [Suspect]
     Indication: MULTIPLE MYELOMA
     Dosage: 3 MG, UNK
  4. PERCOCET [Concomitant]
  5. PROVENTIL [Concomitant]
  6. ZOCOR [Concomitant]
  7. ZOVIRAX [Concomitant]

REACTIONS (1)
  - PNEUMONIA [None]
